FAERS Safety Report 7388851-5 (Version None)
Quarter: 2011Q2

REPORT INFORMATION
  Report Type: 
  Country: None (occurrence: None)
  Receive Date: 20110401
  Receipt Date: 20110324
  Transmission Date: 20111010
  Serious: Yes (Hospitalization)
  Sender: FDA-Public Use
  Company Number: DK-NOVOPROD-325582

PATIENT
  Age: 60 Year
  Sex: Female
  Weight: 74 kg

DRUGS (16)
  1. IRON [Concomitant]
  2. LOSARTAN POTASSIUM [Concomitant]
  3. ATORVASTATIN CALCIUM [Concomitant]
  4. CALCIUM [Concomitant]
  5. LEVOTHYROXINE SODIUM [Concomitant]
  6. WARFARIN SODIUM [Concomitant]
  7. POTASSIUM CHLORIDE [Concomitant]
  8. PANTOPRAZOLE [Concomitant]
  9. D VITAMIINI [Concomitant]
  10. LEVEMIR [Suspect]
     Indication: TYPE 2 DIABETES MELLITUS
     Dosage: 3-6 IU DAILY
  11. FUROSEMIDE [Concomitant]
  12. SPIRONOLACTONE [Concomitant]
  13. EZETIMIBE [Concomitant]
  14. DIGOXIN [Concomitant]
  15. GABAPENTIN [Concomitant]
  16. PARACETAMOL [Concomitant]

REACTIONS (2)
  - TRANSIENT ISCHAEMIC ATTACK [None]
  - FEELING COLD [None]
